FAERS Safety Report 6130898-0 (Version None)
Quarter: 2009Q1

REPORT INFORMATION
  Report Type: 
  Country: None (occurrence: None)
  Receive Date: 20090318
  Receipt Date: 20090306
  Transmission Date: 20090719
  Serious: Yes (Hospitalization, Other)
  Sender: FDA-Public Use
  Company Number: AEGBR200900039

PATIENT
  Age: 33 Year
  Sex: Female
  Weight: 81 kg

DRUGS (5)
  1. IGIV (MANUFACTURER UNKNOWN) [Suspect]
     Indication: IDIOPATHIC THROMBOCYTOPENIC PURPURA
     Dosage: IV
     Route: 042
  2. ASPIRIN [Suspect]
     Indication: ANTIPHOSPHOLIPID SYNDROME
     Dosage: PO
     Route: 048
  3. AZATHIOPRINE [Suspect]
     Indication: IDIOPATHIC THROMBOCYTOPENIC PURPURA
     Dosage: PO
     Route: 048
  4. DALTEPARIN SODIUM [Suspect]
     Indication: ANTIPHOSPHOLIPID SYNDROME
     Dosage: SC
     Route: 058
  5. CORTICOSTEROID NOS (CORTICOSTEROID NOS) [Suspect]
     Indication: THROMBOCYTOPENIA

REACTIONS (13)
  - ACTIVATED PARTIAL THROMBOPLASTIN TIME PROLONGED [None]
  - CAESAREAN SECTION [None]
  - CEREBRAL THROMBOSIS [None]
  - DRUG EXPOSURE DURING PREGNANCY [None]
  - DYSPHASIA [None]
  - FALL [None]
  - FOETAL MALPRESENTATION [None]
  - HAEMOGLOBIN DECREASED [None]
  - HEART RATE INCREASED [None]
  - HYPOCOAGULABLE STATE [None]
  - HYPOTONIA [None]
  - PREMATURE LABOUR [None]
  - PREMATURE RUPTURE OF MEMBRANES [None]
